FAERS Safety Report 8989990 (Version 3)
Quarter: 2013Q1

REPORT INFORMATION
  Report Type: Spontaneous
  Country: US (occurrence: US)
  Receive Date: 20121228
  Receipt Date: 20130325
  Transmission Date: 20140127
  Serious: Yes (Hospitalization)
  Sender: FDA-Public Use
  Company Number: US-ASTRAZENECA-2012SE94941

PATIENT
  Age: 21 Week
  Sex: Female
  Weight: 2.9 kg

DRUGS (5)
  1. SYNAGIS [Suspect]
     Dosage: 50 MG/0.5 ML VIAL, 15 MG/KG ONCE MONTHLY
     Route: 030
     Dates: start: 20121128
  2. SYNAGIS [Suspect]
     Dosage: 50 MG/0.5 ML VIAL, 15 MG/KG ONCE MONTHLY
     Route: 030
     Dates: start: 20130109, end: 20130109
  3. SYNAGIS [Suspect]
     Dosage: 50 MG/0.5 ML VIAL, 15 MG/KG ONCE MONTHLY
     Route: 030
     Dates: start: 20130211, end: 20130211
  4. DIGITEK [Concomitant]
  5. LASIX [Concomitant]

REACTIONS (1)
  - Pneumonia viral [Unknown]
